FAERS Safety Report 19853773 (Version 4)
Quarter: 2021Q4

REPORT INFORMATION
  Report Type: Spontaneous
  Country: US (occurrence: US)
  Receive Date: 20210920
  Receipt Date: 20211202
  Transmission Date: 20220303
  Serious: Yes (Hospitalization)
  Sender: FDA-Public Use
  Company Number: US-AMGEN-USASP2021141335

PATIENT
  Age: 81 Year
  Sex: Female

DRUGS (1)
  1. REPATHA [Suspect]
     Active Substance: EVOLOCUMAB
     Indication: Blood triglycerides increased
     Dosage: 140 MILLIGRAM, QMO
     Route: 065

REACTIONS (4)
  - Dyspnoea [Unknown]
  - Device difficult to use [Unknown]
  - Off label use [Unknown]
  - Blood cholesterol increased [Unknown]

NARRATIVE: CASE EVENT DATE: 20210901
